FAERS Safety Report 21443426 (Version 1)
Quarter: 2022Q4

REPORT INFORMATION
  Report Type: Report from Study
  Country: US (occurrence: US)
  Receive Date: 20221012
  Receipt Date: 20221012
  Transmission Date: 20230113
  Serious: Yes (Other)
  Sender: FDA-Public Use
  Company Number: US-ABBVIE-4150920

PATIENT
  Sex: Male

DRUGS (2)
  1. HUMIRA [Suspect]
     Active Substance: ADALIMUMAB
     Indication: Rheumatoid arthritis
     Dosage: STRENGTH :40MG/0.4ML, THERAPY WAS START IN 2022, SECOND THERAPY REGIMEN
     Route: 058
  2. HUMIRA [Suspect]
     Active Substance: ADALIMUMAB
     Dosage: FIRST THERAPY REGIMEN. STRENGTH :40MG/0.4ML
     Route: 058
     Dates: start: 20220308

REACTIONS (1)
  - Medical procedure [Recovered/Resolved]
